FAERS Safety Report 5716047-9 (Version None)
Quarter: 2008Q2

REPORT INFORMATION
  Report Type: 
  Country: None (occurrence: None)
  Receive Date: 20080423
  Receipt Date: 20080423
  Transmission Date: 20081010
  Serious: Yes (Life-Threatening, Hospitalization)
  Sender: FDA-Public Use
  Company Number: None

PATIENT
  Sex: Female
  Weight: 63.9572 kg

DRUGS (8)
  1. DASATINIB 50MG BMS [Suspect]
     Indication: NEOPLASM MALIGNANT
     Dosage: 150MG X1 PO
     Route: 048
     Dates: start: 20080421, end: 20080421
  2. SYNTHROID [Concomitant]
  3. PRINIVIL [Concomitant]
  4. FOLIC ACID [Concomitant]
  5. FELDENE [Concomitant]
  6. ZYRTEC [Concomitant]
  7. ROILAIDS [Concomitant]
  8. MELATONIN [Concomitant]

REACTIONS (2)
  - DRUG HYPERSENSITIVITY [None]
  - HYPOTENSION [None]
